FAERS Safety Report 9486448 (Version 1)
Quarter: 2013Q3

REPORT INFORMATION
  Report Type: Spontaneous
  Country: US (occurrence: US)
  Receive Date: 20130829
  Receipt Date: 20130829
  Transmission Date: 20140515
  Serious: Yes (Hospitalization, Other)
  Sender: FDA-Public Use
  Company Number: US-UCBSA-096301

PATIENT
  Age: 66 Year
  Sex: Male

DRUGS (4)
  1. LEVETIRACETAM [Suspect]
     Indication: CONVULSION
     Dates: end: 2012
  2. LEVETIRACETAM [Suspect]
     Indication: CONVULSION
     Dates: start: 2012, end: 2012
  3. LEVETIRACETAM [Suspect]
     Indication: CONVULSION
     Dates: start: 2012, end: 2012
  4. INSULIN [Suspect]
     Dosage: 80 UNITS
     Dates: start: 2012

REACTIONS (15)
  - Suicide attempt [Unknown]
  - Major depression [Unknown]
  - Suicidal ideation [Unknown]
  - Electrocardiogram QT prolonged [Unknown]
  - Atrioventricular block first degree [Unknown]
  - Grand mal convulsion [Unknown]
  - Cerebral small vessel ischaemic disease [Unknown]
  - Cerebral atrophy [Unknown]
  - Lacunar infarction [Unknown]
  - Convulsion [Unknown]
  - Blood creatine phosphokinase increased [Unknown]
  - Hyperglycaemia [Unknown]
  - Hypocalcaemia [Unknown]
  - Anaemia [Unknown]
  - Treatment noncompliance [Unknown]
